FAERS Safety Report 15370613 (Version 1)
Quarter: 2018Q3

REPORT INFORMATION
  Report Type: Spontaneous
  Country: FR (occurrence: FR)
  Receive Date: 20180911
  Receipt Date: 20180911
  Transmission Date: 20181010
  Serious: Yes (Hospitalization)
  Sender: FDA-Public Use
  Company Number: FR-SA-2018SA247033

PATIENT
  Age: 90 Year
  Sex: Female

DRUGS (4)
  1. ESOMEPRAZOLE [Suspect]
     Active Substance: ESOMEPRAZOLE
     Indication: PRODUCT USED FOR UNKNOWN INDICATION
     Dates: start: 20180619, end: 20180716
  2. OFLOXACINE [Suspect]
     Active Substance: OFLOXACIN
     Indication: BACTERAEMIA
     Route: 048
     Dates: start: 20180507, end: 20180719
  3. RIFADINE [Suspect]
     Active Substance: RIFAMPIN
     Indication: BACTERAEMIA
     Route: 048
     Dates: start: 20180507, end: 20180719
  4. PARACETAMOL MYLAN [Suspect]
     Active Substance: ACETAMINOPHEN
     Indication: OSTEOARTHRITIS
     Dosage: 3000 MG, QD
     Route: 048

REACTIONS (1)
  - Metabolic acidosis [Recovering/Resolving]

NARRATIVE: CASE EVENT DATE: 20180719
